FAERS Safety Report 5952104-X (Version None)
Quarter: 2008Q4

REPORT INFORMATION
  Report Type: 
  Country: None (occurrence: None)
  Receive Date: 20081113
  Receipt Date: 20080416
  Transmission Date: 20090506
  Serious: No
  Sender: FDA-Public Use
  Company Number: A0723172A

PATIENT
  Age: 39 Year
  Sex: Male

DRUGS (5)
  1. COREG [Suspect]
     Indication: DRUG USE FOR UNKNOWN INDICATION
     Dosage: 12.5MG TWICE PER DAY
     Route: 048
  2. TYLENOL (CAPLET) [Concomitant]
  3. LISINOPRIL [Concomitant]
  4. CRESTOR [Concomitant]
  5. PLAVIX [Concomitant]

REACTIONS (4)
  - DYSPNOEA [None]
  - HYPOVENTILATION [None]
  - PRODUCT QUALITY ISSUE [None]
  - YAWNING [None]
